FAERS Safety Report 16133953 (Version 2)
Quarter: 2019Q2

REPORT INFORMATION
  Report Type: Spontaneous
  Country: US (occurrence: US)
  Receive Date: 20190329
  Receipt Date: 20190416
  Transmission Date: 20190711
  Serious: No
  Sender: FDA-Public Use
  Company Number: US-AMGEN-USASP2019046929

PATIENT
  Age: 83 Year
  Sex: Female
  Weight: 92.06 kg

DRUGS (1)
  1. PROLIA [Suspect]
     Active Substance: DENOSUMAB
     Indication: OSTEOPOROSIS
     Dosage: 60 MILLIGRAM, Q6MO
     Route: 065
     Dates: start: 201707, end: 20181218

REACTIONS (2)
  - Groin pain [Unknown]
  - Arthralgia [Recovered/Resolved]
